FAERS Safety Report 5115133-4 (Version None)
Quarter: 2006Q3

REPORT INFORMATION
  Report Type: 
  Country: None (occurrence: None)
  Receive Date: 20060922
  Receipt Date: 20060915
  Transmission Date: 20061208
  Serious: Yes (Hospitalization)
  Sender: FDA-Public Use
  Company Number: 163-C5013-06050418

PATIENT
  Age: 52 Year
  Sex: Male
  Weight: 58.5 kg

DRUGS (17)
  1. CC-5013 (LENALIDOMIDE) (CAPSULES) REVLIMID [Suspect]
     Indication: MULTIPLE MYELOMA
     Dosage: 25 NGM QD DAYS 1-21, Q28D, ORAL
     Route: 048
     Dates: start: 20060123, end: 20060503
  2. DEXAMETHASONE [Suspect]
     Indication: MULTIPLE MYELOMA
     Dosage: 40 MG, QD DAYS 1-4, 9-12, 17-20, Q28D, ORAL
     Route: 048
     Dates: start: 20060123, end: 20060503
  3. ULTRAM [Concomitant]
  4. NYSTATIN [Concomitant]
  5. METOCLOPRAMIDE [Concomitant]
  6. RISPERIDONE [Concomitant]
  7. BACLOFEN [Concomitant]
  8. FENTANYL [Concomitant]
  9. SENNA [Concomitant]
  10. ARANESP [Concomitant]
  11. LEVAQUIN [Concomitant]
  12. ZOMETA [Concomitant]
  13. CELEXA [Concomitant]
  14. COLACE (DOCUSATE SODIUM) [Concomitant]
  15. LOVENOX [Concomitant]
  16. PREVACID [Concomitant]
  17. OXYCODONE HCL [Concomitant]

REACTIONS (25)
  - ABDOMINAL PAIN [None]
  - BACK PAIN [None]
  - BLOOD ALBUMIN DECREASED [None]
  - BLOOD CALCIUM DECREASED [None]
  - BLOOD CHLORIDE DECREASED [None]
  - BLOOD MAGNESIUM INCREASED [None]
  - BLOOD POTASSIUM INCREASED [None]
  - CACHEXIA [None]
  - CLOSTRIDIUM DIFFICILE COLITIS [None]
  - COLITIS [None]
  - COLITIS ISCHAEMIC [None]
  - DEHYDRATION [None]
  - DIARRHOEA [None]
  - FATIGUE [None]
  - HYPONATRAEMIA [None]
  - INFECTION [None]
  - MENTAL STATUS CHANGES [None]
  - NAUSEA [None]
  - NEUTROPHIL COUNT INCREASED [None]
  - PCO2 DECREASED [None]
  - PLATELET COUNT DECREASED [None]
  - STAPHYLOCOCCAL INFECTION [None]
  - SYNCOPE [None]
  - VOMITING [None]
  - WHITE BLOOD CELL COUNT INCREASED [None]
